FAERS Safety Report 8585344-4 (Version None)
Quarter: 2012Q3

REPORT INFORMATION
  Report Type: 
  Country: None (occurrence: None)
  Receive Date: 20120810
  Receipt Date: 20120801
  Transmission Date: 20120928
  Serious: Yes (Hospitalization, Other)
  Sender: FDA-Public Use
  Company Number: CA-ASTELLAS-2012US004081

PATIENT
  Sex: Female

DRUGS (16)
  1. PROGRAF [Suspect]
     Indication: RENAL TRANSPLANT
     Dosage: 1 MG IN THE MORNING, 0.5 MG IN THE EVENING
     Route: 065
     Dates: start: 20020125
  2. PREDNISONE TAB [Concomitant]
     Indication: PRODUCT USED FOR UNKNOWN INDICATION
     Dosage: UNK
     Route: 065
  3. FUROSEMIDE [Concomitant]
     Indication: PRODUCT USED FOR UNKNOWN INDICATION
     Dosage: UNK
     Route: 065
  4. NIFEDIPINE [Concomitant]
     Indication: PRODUCT USED FOR UNKNOWN INDICATION
     Dosage: UNK
     Route: 065
  5. CALCIUM CARBONATE [Concomitant]
     Indication: PRODUCT USED FOR UNKNOWN INDICATION
     Dosage: UNK
     Route: 065
  6. SODIUM BICARBONATE [Concomitant]
     Indication: PRODUCT USED FOR UNKNOWN INDICATION
     Dosage: UNK
     Route: 065
  7. IBUPROFEN [Concomitant]
     Indication: PRODUCT USED FOR UNKNOWN INDICATION
     Dosage: UNK
     Route: 065
  8. LOSEC                              /00661201/ [Concomitant]
     Indication: PRODUCT USED FOR UNKNOWN INDICATION
     Dosage: UNK
     Route: 065
  9. CELEXA [Concomitant]
     Indication: PRODUCT USED FOR UNKNOWN INDICATION
     Dosage: UNK
     Route: 065
  10. WARFARIN SODIUM [Suspect]
     Indication: ATRIAL FIBRILLATION
     Dosage: UNK
     Route: 065
  11. ASPIRIN [Concomitant]
     Indication: PRODUCT USED FOR UNKNOWN INDICATION
     Dosage: 81 MG, UNKNOWN/D
     Route: 065
  12. AMOXICILLIN [Concomitant]
     Indication: ENDODONTIC PROCEDURE
     Dosage: UNK
     Route: 065
  13. CLINDAMYCIN [Suspect]
     Indication: ENDODONTIC PROCEDURE
     Dosage: UNK
     Route: 065
     Dates: end: 20120328
  14. RAMIPRIL [Concomitant]
     Indication: PRODUCT USED FOR UNKNOWN INDICATION
     Dosage: UNK
     Route: 065
  15. METOPROLOL TARTRATE [Concomitant]
     Indication: PRODUCT USED FOR UNKNOWN INDICATION
     Dosage: UNK
     Route: 065
  16. SYNTHROID [Concomitant]
     Indication: HYPOTHYROIDISM
     Dosage: UNK
     Route: 065

REACTIONS (20)
  - SLEEP APNOEA SYNDROME [None]
  - DRUG INTERACTION [None]
  - PULMONARY HYPERTENSION [None]
  - RENAL FAILURE ACUTE [None]
  - HEPATITIS ACUTE [None]
  - MALLORY-WEISS SYNDROME [None]
  - FOCAL SEGMENTAL GLOMERULOSCLEROSIS [None]
  - COAGULOPATHY [None]
  - CARDIAC FAILURE CONGESTIVE [None]
  - CARDIAC VALVE DISEASE [None]
  - CARDIAC PACEMAKER INSERTION [None]
  - NON-ALCOHOLIC STEATOHEPATITIS [None]
  - UTERINE LEIOMYOMA [None]
  - DYSLIPIDAEMIA [None]
  - HYPOTHYROIDISM [None]
  - THROMBOCYTOPENIA [None]
  - DEPRESSION [None]
  - CYSTITIS KLEBSIELLA [None]
  - HYPOCALCAEMIA [None]
  - GASTROOESOPHAGEAL REFLUX DISEASE [None]
